FAERS Safety Report 12179508 (Version 1)
Quarter: 2016Q1

REPORT INFORMATION
  Report Type: Spontaneous
  Country: US (occurrence: None)
  Receive Date: 20160314
  Receipt Date: 20160314
  Transmission Date: 20160526
  Serious: Yes (Other)
  Sender: FDA-Public Use
  Company Number: None

PATIENT
  Age: 76 Year
  Sex: Female
  Weight: 74.84 kg

DRUGS (10)
  1. MULTIVITAMINS [Concomitant]
     Active Substance: VITAMINS
  2. COENZYME Q10 [Concomitant]
     Active Substance: UBIDECARENONE
  3. METROPOLOL [Concomitant]
     Active Substance: METOPROLOL
  4. BIOTIN [Concomitant]
     Active Substance: BIOTIN
  5. LEVOTHYROXINE. [Concomitant]
     Active Substance: LEVOTHYROXINE
  6. POTASSIUM [Concomitant]
     Active Substance: POTASSIUM
  7. CRESTOR [Suspect]
     Active Substance: ROSUVASTATIN CALCIUM
     Indication: HYPERLIPIDAEMIA
     Dosage: ONE PILL EVERY DAY ONCE DAILY TAKEN BY MOUTH
     Route: 048
     Dates: start: 2013, end: 2015
  8. HYDROCLOTHIAZIDE [Concomitant]
  9. HYDRALAZINE [Concomitant]
     Active Substance: HYDRALAZINE HYDROCHLORIDE
  10. ZANTAC [Concomitant]
     Active Substance: RANITIDINE HYDROCHLORIDE

REACTIONS (5)
  - Hypoaesthesia [None]
  - Pain [None]
  - Gait disturbance [None]
  - Burning sensation [None]
  - Paraesthesia [None]

NARRATIVE: CASE EVENT DATE: 20151208
